FAERS Safety Report 10191605 (Version 2)
Quarter: 2014Q2

REPORT INFORMATION
  Report Type: Report from Study
  Country: US (occurrence: US)
  Receive Date: 20140523
  Receipt Date: 20140523
  Transmission Date: 20141212
  Serious: Yes (Hospitalization, Other)
  Sender: FDA-Public Use
  Company Number: US-ABBVIE-14P-163-1237550-00

PATIENT
  Age: 72 Year
  Sex: Female

DRUGS (4)
  1. HUMIRA [Suspect]
     Indication: CROHN^S DISEASE
     Dates: start: 201309, end: 201404
  2. HUMIRA [Suspect]
  3. SYNTHROID [Concomitant]
     Indication: PRODUCT USED FOR UNKNOWN INDICATION
  4. PROZAC [Concomitant]
     Indication: PRODUCT USED FOR UNKNOWN INDICATION

REACTIONS (7)
  - Amnesia [Unknown]
  - Confusional state [Unknown]
  - Normal pressure hydrocephalus [Unknown]
  - Cerebral ventricle dilatation [Unknown]
  - Colitis [Unknown]
  - Amnesia [Unknown]
  - Confusional state [Unknown]
